FAERS Safety Report 7764414 (Version 3)
Quarter: 2013Q4

REPORT INFORMATION
  Report Type: Spontaneous
  Country: FR (occurrence: FR)
  Receive Date: 20110118
  Receipt Date: 20131223
  Transmission Date: 20140711
  Serious: Yes (Hospitalization, Other)
  Sender: FDA-Public Use
  Company Number: FR-WATSON-2010-16758

PATIENT
  Age: 4 Month
  Sex: Female
  Weight: 2.8 kg

DRUGS (10)
  1. SALBUTAMOL [Suspect]
     Indication: BRONCHOPULMONARY DYSPLASIA
     Dosage: 0.15 MG X 1, 4 TIMES A DAY
     Route: 055
     Dates: start: 20101230, end: 20101230
  2. UVESTEROL [Concomitant]
     Indication: PRODUCT USED FOR UNKNOWN INDICATION
     Route: 048
  3. FERROSTRANE [Concomitant]
     Indication: PRODUCT USED FOR UNKNOWN INDICATION
  4. SPECIAFOLDINE [Concomitant]
     Indication: PRODUCT USED FOR UNKNOWN INDICATION
  5. GAVISCON                           /00237601/ [Concomitant]
     Indication: PRODUCT USED FOR UNKNOWN INDICATION
  6. MOTILIUM                           /00498201/ [Concomitant]
     Indication: PRODUCT USED FOR UNKNOWN INDICATION
  7. INEXIUM                            /01479302/ [Concomitant]
     Indication: PRODUCT USED FOR UNKNOWN INDICATION
  8. ESIDREX [Concomitant]
     Indication: PRODUCT USED FOR UNKNOWN INDICATION
  9. ALDACTONE                          /00006201/ [Concomitant]
     Indication: PRODUCT USED FOR UNKNOWN INDICATION
  10. PULMICORT [Concomitant]
     Indication: PRODUCT USED FOR UNKNOWN INDICATION

REACTIONS (3)
  - Oxygen saturation decreased [Recovered/Resolved]
  - Respiratory disorder [Unknown]
  - Apnoea [Not Recovered/Not Resolved]
